FAERS Safety Report 9465044 (Version 3)
Quarter: 2016Q1

REPORT INFORMATION
  Report Type: Spontaneous
  Country: US (occurrence: US)
  Receive Date: 20130819
  Receipt Date: 20160215
  Transmission Date: 20160526
  Serious: Yes (Hospitalization, Disabling, Other)
  Sender: FDA-Public Use
  Company Number: US-009507513-1308USA008278

PATIENT
  Sex: Female

DRUGS (3)
  1. ALENDRONATE SODIUM. [Suspect]
     Active Substance: ALENDRONATE SODIUM
     Indication: OSTEOPOROSIS
     Dosage: 70 MG, QW
     Route: 048
     Dates: start: 2008, end: 2011
  2. FOSAMAX [Suspect]
     Active Substance: ALENDRONATE SODIUM
     Indication: OSTEOPOROSIS
     Dosage: UNK
     Route: 048
     Dates: start: 1996
  3. FOSAMAX [Suspect]
     Active Substance: ALENDRONATE SODIUM
     Dosage: 70 MG, QW
     Route: 048
     Dates: end: 2008

REACTIONS (43)
  - Hip fracture [Not Recovered/Not Resolved]
  - Diverticulum [Unknown]
  - Atrial flutter [Unknown]
  - Coronary artery disease [Unknown]
  - Cholecystitis chronic [Unknown]
  - Blood cholesterol increased [Unknown]
  - Congestive cardiomyopathy [Unknown]
  - Bone density decreased [Not Recovered/Not Resolved]
  - Cardiac failure congestive [Unknown]
  - Joint arthroplasty [Unknown]
  - Joint arthroplasty [Unknown]
  - Stress fracture [Not Recovered/Not Resolved]
  - Femur fracture [Unknown]
  - Reflux laryngitis [Unknown]
  - Hypertension [Unknown]
  - Mitral valve incompetence [Unknown]
  - Aortic valve incompetence [Unknown]
  - Back pain [Unknown]
  - Malnutrition [Unknown]
  - Haemorrhagic anaemia [Unknown]
  - Hip surgery [Unknown]
  - Appendicectomy [Unknown]
  - Hysterosalpingo-oophorectomy [Unknown]
  - Atrial fibrillation [Unknown]
  - Biliary dyskinesia [Unknown]
  - Femur fracture [Not Recovered/Not Resolved]
  - Atrial fibrillation [Unknown]
  - Superior mesenteric artery syndrome [Unknown]
  - Internal hernia [Unknown]
  - Myocardial infarction [Unknown]
  - Fall [Unknown]
  - Urinary tract infection bacterial [Unknown]
  - Cerebral small vessel ischaemic disease [Unknown]
  - Cardiac failure chronic [Unknown]
  - Systolic dysfunction [Unknown]
  - Osteoporosis [Not Recovered/Not Resolved]
  - Hip fracture [Unknown]
  - Surgery [Unknown]
  - Femur fracture [Not Recovered/Not Resolved]
  - Peptic ulcer [Unknown]
  - Small intestinal obstruction [Unknown]
  - Asthenia [Unknown]
  - Atelectasis [Unknown]

NARRATIVE: CASE EVENT DATE: 1998
